FAERS Safety Report 6036601-7 (Version None)
Quarter: 2009Q1

REPORT INFORMATION
  Report Type: 
  Country: None (occurrence: None)
  Receive Date: 20090114
  Receipt Date: 20090109
  Transmission Date: 20090719
  Serious: Yes (Other)
  Sender: FDA-Public Use
  Company Number: US-ASTRAZENECA-2009UW00816

PATIENT
  Age: 45 Year
  Sex: Female

DRUGS (2)
  1. ENTOCORT EC [Suspect]
     Indication: CROHN'S DISEASE
     Route: 048
     Dates: start: 20081201, end: 20090108
  2. PENTASA [Concomitant]

REACTIONS (4)
  - CHEST PAIN [None]
  - HYPOKALAEMIA [None]
  - PARAESTHESIA [None]
  - PARALYSIS [None]
